FAERS Safety Report 9801319 (Version 1)
Quarter: 2014Q1

REPORT INFORMATION
  Report Type: Spontaneous
  Country: US (occurrence: US)
  Receive Date: 20140107
  Receipt Date: 20140107
  Transmission Date: 20141002
  Serious: Yes (Hospitalization)
  Sender: FDA-Public Use
  Company Number: US-SA-2014SA001004

PATIENT
  Age: 89 Year
  Sex: Female

DRUGS (12)
  1. MULTAQ [Suspect]
     Indication: ATRIAL FIBRILLATION
     Route: 048
  2. CORGARD [Concomitant]
     Indication: FAMILIAL TREMOR
     Dosage: DOSE ? TABLETS BID ALTERNATING EVERY OTHER DAY
  3. BENICAR [Concomitant]
     Indication: HYPERTENSION
  4. SIMVASTATIN [Concomitant]
     Indication: BLOOD CHOLESTEROL INCREASED
     Dosage: FREQUENCY QHS
  5. HYDROCHLOROTHIAZIDE WITH TRIAMTERENE [Concomitant]
     Indication: ATRIAL FIBRILLATION
     Dosage: DOSE HALF TABLET 25 MG DAILY
  6. HYDROCHLOROTHIAZIDE WITH TRIAMTERENE [Concomitant]
     Indication: HYPERTENSION
     Dosage: DOSE HALF TABLET 25 MG DAILY
  7. WARFARIN [Concomitant]
  8. VITAMIN B12 [Concomitant]
  9. VITAMIN D3 [Concomitant]
  10. VITAMIN C [Concomitant]
  11. TYLENOL [Concomitant]
     Indication: ARTHRITIS
  12. ALL OTHER THERAPEUTIC PRODUCTS [Concomitant]
     Indication: FAMILIAL TREMOR
     Dosage: DOSE HALF TABLET DAILY

REACTIONS (5)
  - Fall [Unknown]
  - Hip fracture [Recovered/Resolved]
  - Fatigue [Not Recovered/Not Resolved]
  - Dyspnoea [Not Recovered/Not Resolved]
  - Walking aid user [Unknown]
